FAERS Safety Report 4954130-6 (Version None)
Quarter: 2006Q1

REPORT INFORMATION
  Report Type: 
  Country: None (occurrence: None)
  Receive Date: 20060327
  Receipt Date: 20060323
  Transmission Date: 20060701
  Serious: Yes (Death)
  Sender: FDA-Public Use
  Company Number: DE-GLAXOSMITHKLINE-D0049173A

PATIENT
  Age: 60 Year
  Sex: Female
  Weight: 61.5 kg

DRUGS (4)
  1. ARIXTRA [Suspect]
     Dosage: 7.5MG PER DAY
     Route: 058
     Dates: start: 20051004, end: 20051007
  2. ASPIRIN [Concomitant]
     Dosage: 500MG THREE TIMES PER WEEK
     Route: 065
  3. DICLOFENAC [Concomitant]
     Dosage: 50MG THREE TIMES PER DAY
     Route: 065
  4. MARCUMAR [Concomitant]
     Route: 048
     Dates: start: 20051004

REACTIONS (2)
  - BRAIN STEM HAEMORRHAGE [None]
  - CIRCULATORY COLLAPSE [None]
